FAERS Safety Report 4628639-9 (Version None)
Quarter: 2005Q2

REPORT INFORMATION
  Report Type: 
  Country: None (occurrence: None)
  Receive Date: 20050404
  Receipt Date: 20050317
  Transmission Date: 20051028
  Serious: Yes (Hospitalization)
  Sender: FDA-Public Use
  Company Number: 2005-DE-01105DE

PATIENT
  Age: 61 Year
  Sex: Female

DRUGS (2)
  1. SIFROL (PRAMIPEXOLE DIHYDROCHLORIDE) (TA) (PRAMIPEXOLE) [Suspect]
     Dosage: 6 ANZ (0.18 MG), PO
     Route: 048
  2. ASPIRIN [Concomitant]

REACTIONS (6)
  - ALCOHOL USE [None]
  - CIRCULATORY COLLAPSE [None]
  - CONFUSIONAL STATE [None]
  - DRUG ABUSER [None]
  - LOSS OF CONSCIOUSNESS [None]
  - SUICIDE ATTEMPT [None]
